FAERS Safety Report 15237879 (Version 3)
Quarter: 2018Q3

REPORT INFORMATION
  Report Type: Report from Study
  Country: ES (occurrence: ES)
  Receive Date: 20180803
  Receipt Date: 20180831
  Transmission Date: 20181010
  Serious: No
  Sender: FDA-Public Use
  Company Number: ES-SHIRE-ES201826716

PATIENT

DRUGS (3)
  1. REVESTIVE [Suspect]
     Active Substance: TEDUGLUTIDE
     Indication: PRODUCT USED FOR UNKNOWN INDICATION
     Dosage: 0.06 ML, 1X/DAY:QD
     Route: 058
     Dates: start: 20171027, end: 20180302
  2. REVESTIVE [Suspect]
     Active Substance: TEDUGLUTIDE
     Dosage: 0.07 ML, 1X/DAY:QD
     Route: 058
  3. URSODEOXYCHOLIC ACID [Concomitant]
     Active Substance: URSODIOL
     Indication: PRODUCT USED FOR UNKNOWN INDICATION

REACTIONS (9)
  - Diarrhoea [Recovered/Resolved]
  - Skin papilloma [Unknown]
  - Stoma complication [Unknown]
  - Abnormal faeces [Recovered/Resolved]
  - Frequent bowel movements [Recovered/Resolved]
  - Decreased appetite [Unknown]
  - Skin haemorrhage [Unknown]
  - Weight increased [Unknown]
  - Cough [Recovered/Resolved]

NARRATIVE: CASE EVENT DATE: 201805
